FAERS Safety Report 4509547-0 (Version None)
Quarter: 2004Q4

REPORT INFORMATION
  Report Type: 
  Country: None (occurrence: None)
  Receive Date: 20041119
  Receipt Date: 20041106
  Transmission Date: 20050328
  Serious: Yes (Hospitalization, Other)
  Sender: FDA-Public Use
  Company Number: HQWYE518204OCT04

PATIENT
  Age: 67 Year
  Sex: Male
  Weight: 80 kg

DRUGS (13)
  1. TACROLIMUS, CONTROL FOR SIROLIMUS (TACROLIMUS, CONTROL FOR SIROLIMUS, [Suspect]
     Indication: PROPHYLAXIS AGAINST TRANSPLANT REJECTION
     Dosage: 4 MG 1X PER 1 DAY, ORAL
     Route: 048
     Dates: start: 20040630, end: 20040101
  2. TACROLIMUS, CONTROL FOR SIROLIMUS (TACROLIMUS, CONTROL FOR SIROLIMUS, [Suspect]
     Indication: PROPHYLAXIS AGAINST TRANSPLANT REJECTION
     Dosage: 3 MG 2X PER 1 DAY, ORAL
     Route: 048
     Dates: start: 20041004
  3. CELLCEPT [Suspect]
     Indication: PROPHYLAXIS AGAINST TRANSPLANT REJECTION
     Dosage: 500 MG 2X PER 1 DAY, ORAL
     Route: 048
     Dates: start: 20041003
  4. PREDNISONE [Suspect]
     Indication: PROPHYLAXIS AGAINST TRANSPLANT REJECTION
     Dosage: 30 MG 1X PER 1 DAY, ORAL
     Route: 048
  5. NPH INSULIN [Concomitant]
  6. LASIX [Concomitant]
  7. SEPTRA [Concomitant]
  8. CARDIZEM [Concomitant]
  9. HYDRALAZINE HCL TAB [Concomitant]
  10. ACYCLOVIR [Concomitant]
  11. LABETALOL HCL [Concomitant]
  12. LABETALOL HCL [Concomitant]
  13. DIFLUCAN [Concomitant]

REACTIONS (1)
  - KIDNEY TRANSPLANT REJECTION [None]
